FAERS Safety Report 5466529-2 (Version None)
Quarter: 2007Q3

REPORT INFORMATION
  Report Type: 
  Country: None (occurrence: None)
  Receive Date: 20070925
  Receipt Date: 20070911
  Transmission Date: 20080115
  Serious: Yes (Death, Other)
  Sender: FDA-Public Use
  Company Number: TR-NOVOPROD-265371

PATIENT
  Sex: Male

DRUGS (5)
  1. NOVOSEVEN [Suspect]
     Indication: DISSEMINATED INTRAVASCULAR COAGULATION
     Dosage: 90 UG/KG, UNK
     Route: 042
  2. RED BLOOD CELLS [Concomitant]
  3. FRESH FROZEN PLASMA [Concomitant]
  4. CRYOPRECIPITATES [Concomitant]
  5. PLATELETS [Concomitant]

REACTIONS (6)
  - DISSEMINATED INTRAVASCULAR COAGULATION [None]
  - DRUG INEFFECTIVE [None]
  - HAEMATURIA [None]
  - HAEMORRHAGE INTRACRANIAL [None]
  - MULTI-ORGAN FAILURE [None]
  - RENAL FAILURE [None]
